FAERS Safety Report 4766329-2 (Version None)
Quarter: 2005Q3

REPORT INFORMATION
  Report Type: 
  Country: None (occurrence: None)
  Receive Date: 20050909
  Receipt Date: 20050902
  Transmission Date: 20060218
  Serious: Yes (Life-Threatening)
  Sender: FDA-Public Use
  Company Number: LNL-100475-NL

PATIENT
  Age: 50 Year
  Sex: Female

DRUGS (5)
  1. ROCURONIUM BROMIDE [Suspect]
     Indication: MUSCLE RELAXANT THERAPY
     Dosage: 100 MG ONCE INTRAVENOUS (NOS)
     Route: 042
     Dates: start: 19980311, end: 19980311
  2. LIGNOCAINE [Suspect]
     Indication: MUSCLE RELAXANT THERAPY
     Dosage: 20 MG ONCE INTRAVENOUS (NOS)
     Route: 042
     Dates: start: 19980311, end: 19980311
  3. ALFENTANIL [Suspect]
     Indication: MUSCLE RELAXANT THERAPY
     Dosage: 30 MG ONCE INTRAVENOUS (NOS)
     Route: 042
     Dates: start: 19980311, end: 19980311
  4. PROPOFOL [Suspect]
     Indication: MUSCLE RELAXANT THERAPY
     Dosage: 100 MG ONCE INTRAVENOUS (NOS)
     Route: 042
     Dates: start: 19980311, end: 19980311
  5. DEXAMETHASONE [Concomitant]

REACTIONS (9)
  - ANAPHYLACTOID SHOCK [None]
  - BREATH SOUNDS ABNORMAL [None]
  - ELECTROCARDIOGRAM ST SEGMENT DEPRESSION [None]
  - PROCEDURAL COMPLICATION [None]
  - RASH MACULO-PAPULAR [None]
  - RESPIRATORY FAILURE [None]
  - RHYTHM IDIOVENTRICULAR [None]
  - SKIN TEST POSITIVE [None]
  - VENTRICULAR EXTRASYSTOLES [None]
